FAERS Safety Report 4753957-3 (Version None)
Quarter: 2005Q3

REPORT INFORMATION
  Report Type: 
  Country: None (occurrence: None)
  Receive Date: 20050826
  Receipt Date: 20050812
  Transmission Date: 20060218
  Serious: Yes (Other)
  Sender: FDA-Public Use
  Company Number: 2005116356

PATIENT
  Age: 47 Year
  Sex: Male

DRUGS (8)
  1. GEODON [Suspect]
     Indication: ANXIETY
     Dosage: 40 MG (20 MG, 2 IN 1 D)
     Dates: start: 20040601, end: 20041201
  2. GEODON [Suspect]
     Indication: MAJOR DEPRESSION
     Dosage: 40 MG (20 MG, 2 IN 1 D)
     Dates: start: 20040601, end: 20041201
  3. ANTIPSYCHOTICS ANTIPSYCHOTICS [Suspect]
     Indication: ILL-DEFINED DISORDER
  4. CELEXA [Suspect]
     Indication: ILL-DEFINED DISORDER
     Dosage: 60 MG (1 IN 1 D)
     Dates: end: 20050101
  5. MIRAPEX [Suspect]
     Indication: TREMOR
  6. TRAZODONE HCL [Concomitant]
  7. ALL OTHER THERAPEUTIC PRODUCTS (ALL OTHER THERAPEUTIC PRODUCTS) [Concomitant]
  8. ANTI-DIABETIC (ANTI-DIABETICS [Concomitant]

REACTIONS (8)
  - AKATHISIA [None]
  - DEPRESSION [None]
  - HYPOCHROMIC ANAEMIA [None]
  - INSOMNIA [None]
  - MICROCYTIC ANAEMIA [None]
  - PARKINSON'S DISEASE [None]
  - RESTLESS LEGS SYNDROME [None]
  - TARDIVE DYSKINESIA [None]
